FAERS Safety Report 7770849-6 (Version None)
Quarter: 2011Q3

REPORT INFORMATION
  Report Type: 
  Country: None (occurrence: None)
  Receive Date: 20110922
  Receipt Date: 20110511
  Transmission Date: 20111222
  Serious: Yes (Other)
  Sender: FDA-Public Use
  Company Number: US-ASTRAZENECA-2011SE28272

PATIENT
  Sex: Female

DRUGS (2)
  1. SEROQUEL XR [Suspect]
     Indication: BIPOLAR DISORDER
     Route: 048
     Dates: start: 20050101
  2. XANAX [Suspect]

REACTIONS (7)
  - GRAND MAL CONVULSION [None]
  - DYSGRAPHIA [None]
  - DRUG DOSE OMISSION [None]
  - HYPOACUSIS [None]
  - MENTAL STATUS CHANGES [None]
  - DEPRESSION [None]
  - INSOMNIA [None]
